FAERS Safety Report 13293763 (Version 1)
Quarter: 2017Q1

REPORT INFORMATION
  Report Type: Spontaneous
  Country: CH (occurrence: CH)
  Receive Date: 20170303
  Receipt Date: 20170303
  Transmission Date: 20170428
  Serious: Yes (Hospitalization, Other)
  Sender: FDA-Public Use
  Company Number: CH-BAYER-2017-038472

PATIENT
  Age: 74 Year
  Sex: Male

DRUGS (7)
  1. CEFTRIAXONE. [Suspect]
     Active Substance: CEFTRIAXONE
     Dosage: 2 G, QD
  2. MOXIFLOXACIN ORAL [Suspect]
     Active Substance: MOXIFLOXACIN
  3. METRONIDAZOLE. [Suspect]
     Active Substance: METRONIDAZOLE
  4. CLINDAMYCIN. [Suspect]
     Active Substance: CLINDAMYCIN
  5. DEXAMETHASONE. [Suspect]
     Active Substance: DEXAMETHASONE
  6. AMOXICILLIN W/CLAVULANIC ACID [Suspect]
     Active Substance: AMOXICILLIN\CLAVULANIC ACID
     Dosage: 2.2 G, Q8HR
  7. SORAFENIB (RAF KINASE INHIBITOR) [Suspect]
     Active Substance: SORAFENIB
     Indication: OESOPHAGEAL CARCINOMA

REACTIONS (5)
  - Electrocardiogram QT prolonged [None]
  - Candida infection [Recovered/Resolved]
  - Osteomyelitis bacterial [None]
  - Bone abscess [Recovered/Resolved]
  - Off label use [None]
